FAERS Safety Report 18553134 (Version 4)
Quarter: 2022Q2

REPORT INFORMATION
  Report Type: Other
  Country: JP (occurrence: JP)
  Receive Date: 20201127
  Receipt Date: 20220422
  Transmission Date: 20220721
  Serious: Yes (Death, Other)
  Sender: FDA-Public Use
  Company Number: JP-CHUGAI-A2020050471ROCHE

PATIENT
  Sex: Male
  Weight: 86 kg

DRUGS (9)
  1. TOCILIZUMAB [Suspect]
     Active Substance: TOCILIZUMAB
     Indication: Cytokine release syndrome
     Dosage: DOSAGE IS UNCERTAIN, DATE OF MOST RECENT DOSE: 23/SEP/2020, 24/SEP/2020, 25/SEP/2020
     Route: 065
     Dates: start: 20200922
  2. TOCILIZUMAB [Suspect]
     Active Substance: TOCILIZUMAB
     Route: 065
     Dates: start: 20200923, end: 20200923
  3. TOCILIZUMAB [Suspect]
     Active Substance: TOCILIZUMAB
     Route: 065
     Dates: start: 20200924, end: 20200924
  4. TOCILIZUMAB [Suspect]
     Active Substance: TOCILIZUMAB
     Route: 065
     Dates: start: 20200925, end: 20200925
  5. TOCILIZUMAB [Suspect]
     Active Substance: TOCILIZUMAB
     Route: 065
  6. TOCILIZUMAB [Suspect]
     Active Substance: TOCILIZUMAB
     Route: 065
  7. KYMRIAH [Suspect]
     Active Substance: TISAGENLECLEUCEL
     Indication: Diffuse large B-cell lymphoma recurrent
     Route: 041
     Dates: start: 20200918
  8. FLUDARABINE PHOSPHATE [Concomitant]
     Active Substance: FLUDARABINE PHOSPHATE
     Dosage: UNK
     Route: 065
  9. CYCLOPHOSPHAMIDE [Concomitant]
     Active Substance: CYCLOPHOSPHAMIDE
     Dosage: UNK
     Route: 065

REACTIONS (3)
  - Platelet count decreased [Unknown]
  - Diffuse large B-cell lymphoma recurrent [Fatal]
  - Malignant neoplasm progression [Fatal]
